FAERS Safety Report 8558300-X (Version None)
Quarter: 2012Q3

REPORT INFORMATION
  Report Type: 
  Country: None (occurrence: None)
  Receive Date: 20120801
  Receipt Date: 20120628
  Transmission Date: 20120928
  Serious: No
  Sender: FDA-Public Use
  Company Number: US-ASTRAZENECA-2009SE16256

PATIENT
  Age: 45 Year
  Sex: Female

DRUGS (1)
  1. SEROQUEL [Suspect]
     Route: 048
     Dates: start: 20090301

REACTIONS (6)
  - INSOMNIA [None]
  - FEELING ABNORMAL [None]
  - GLAUCOMA [None]
  - CONSTIPATION [None]
  - DIARRHOEA [None]
  - DRUG DOSE OMISSION [None]
